FAERS Safety Report 22520742 (Version 1)
Quarter: 2023Q2

REPORT INFORMATION
  Report Type: Spontaneous
  Country: GB (occurrence: GB)
  Receive Date: 20230605
  Receipt Date: 20230605
  Transmission Date: 20230721
  Serious: Yes (Other)
  Sender: FDA-Public Use
  Company Number: GB-PFIZER INC-202300206943

PATIENT
  Age: 10 Day
  Sex: Female
  Weight: 3.75 kg

DRUGS (3)
  1. SIROLIMUS [Suspect]
     Active Substance: SIROLIMUS
     Indication: Hamartoma
     Dosage: 0.25 MG (1 MG/M2)
  2. SIROLIMUS [Suspect]
     Active Substance: SIROLIMUS
     Dosage: 0.12 MG (0.48 MG/M2)
  3. SIROLIMUS [Suspect]
     Active Substance: SIROLIMUS
     Dosage: 0.5 MG (1.47 MG/M2)

REACTIONS (4)
  - Neutropenia neonatal [Recovered/Resolved]
  - Off label use [Unknown]
  - Off label use [Unknown]
  - Drug effective for unapproved indication [Unknown]
